FAERS Safety Report 5165833-5 (Version None)
Quarter: 2006Q4

REPORT INFORMATION
  Report Type: 
  Country: None (occurrence: None)
  Receive Date: 20061128
  Receipt Date: 20061113
  Transmission Date: 20070319
  Serious: Yes (Other)
  Sender: FDA-Public Use
  Company Number: 2006JP003932

PATIENT
  Age: 41 Year
  Sex: Female
  Weight: 77.5 kg

DRUGS (25)
  1. PROGRAF [Suspect]
     Indication: BONE MARROW TRANSPLANT
     Dosage: SEE IMAGE
     Dates: start: 20060603, end: 20060604
  2. PROGRAF [Suspect]
     Indication: BONE MARROW TRANSPLANT
     Dosage: SEE IMAGE
     Dates: start: 20060605, end: 20060605
  3. PROGRAF [Suspect]
     Indication: BONE MARROW TRANSPLANT
     Dosage: SEE IMAGE
     Dates: start: 20060611, end: 20060611
  4. PROGRAF [Suspect]
     Indication: BONE MARROW TRANSPLANT
     Dosage: SEE IMAGE
     Dates: start: 20060612, end: 20060612
  5. PROGRAF [Suspect]
     Indication: BONE MARROW TRANSPLANT
     Dosage: SEE IMAGE
     Dates: start: 20060613, end: 20060613
  6. PROGRAF [Suspect]
     Indication: BONE MARROW TRANSPLANT
     Dosage: SEE IMAGE
     Dates: start: 20060614, end: 20060614
  7. PROGRAF [Suspect]
     Indication: BONE MARROW TRANSPLANT
     Dosage: SEE IMAGE
     Dates: start: 20060615
  8. FUNGUARD                        (MICAFUNGIN INJECTION) [Suspect]
     Indication: FUNGAL INFECTION
     Dosage: 150 MG,  IV DRIP
     Route: 041
     Dates: start: 20060603, end: 20060614
  9. VANCOMYCIN [Concomitant]
  10. MAXIPIME [Concomitant]
  11. PRODIF INJECTION [Concomitant]
  12. ROCEPHIN [Concomitant]
  13. ZOVIRAX [Concomitant]
  14. AMIKACIN (AMIKACIN SULFATE) [Concomitant]
  15. OMEGACIN (BIAPENEM) [Concomitant]
  16. TARGOCID [Concomitant]
  17. ALBUMIN (HUMAN) [Concomitant]
  18. SOLDACTONE      (POTASSIUM CANRENOATE) [Concomitant]
  19. LASIX [Concomitant]
  20. SOLU-MEDROL [Concomitant]
  21. FRAGMIN [Concomitant]
  22. GASTER [Concomitant]
  23. NEUPOGEN [Concomitant]
  24. ZYVOX [Concomitant]
  25. IMMUNE GLOBULIN INTRAVENOUS (HUMAN) [Concomitant]

REACTIONS (9)
  - BLOOD CREATININE INCREASED [None]
  - ENCEPHALITIS HERPES [None]
  - ENGRAFTMENT SYNDROME [None]
  - GRAFT VERSUS HOST DISEASE [None]
  - HEPATIC ENZYME INCREASED [None]
  - INFECTION [None]
  - PLASMINOGEN ACTIVATOR INHIBITOR INCREASED [None]
  - THROMBOCYTOPENIA [None]
  - THROMBOTIC MICROANGIOPATHY [None]
